FAERS Safety Report 8355763-X (Version None)
Quarter: 2012Q2

REPORT INFORMATION
  Report Type: 
  Country: None (occurrence: None)
  Receive Date: 20120514
  Receipt Date: 20120510
  Transmission Date: 20120825
  Serious: No
  Sender: FDA-Public Use
  Company Number: US-PFIZER INC-2012114734

PATIENT
  Sex: Male
  Weight: 114 kg

DRUGS (5)
  1. LANTUS [Concomitant]
     Indication: TYPE 1 DIABETES MELLITUS
     Dosage: UNK
  2. NOVOLOG [Concomitant]
     Indication: TYPE 1 DIABETES MELLITUS
     Dosage: UNK
  3. LIPITOR [Suspect]
     Dosage: 40 MG, UNK
     Route: 048
     Dates: start: 20120301
  4. ACCUPRIL [Suspect]
     Indication: BLOOD PRESSURE ABNORMAL
     Dosage: 10 MG, UNK
     Dates: start: 20120301
  5. ASPIRIN [Suspect]
     Dosage: 81 MG, UNK
     Dates: end: 20120101

REACTIONS (4)
  - DIARRHOEA [None]
  - MOOD ALTERED [None]
  - GASTROINTESTINAL PAIN [None]
  - CONSTIPATION [None]
